FAERS Safety Report 18986734 (Version 1)
Quarter: 2021Q1

REPORT INFORMATION
  Report Type: Spontaneous
  Country: FR (occurrence: FR)
  Receive Date: 20210309
  Receipt Date: 20210309
  Transmission Date: 20210420
  Serious: No
  Sender: FDA-Public Use
  Company Number: FR-PFIZER INC-2021004647

PATIENT
  Age: 50 Year
  Sex: Male

DRUGS (1)
  1. NIVESTIM [Suspect]
     Active Substance: FILGRASTIM
     Dosage: 1 DF, DAILY FOR 7 DAYS

REACTIONS (1)
  - Device issue [Unknown]
